FAERS Safety Report 12486565 (Version 2)
Quarter: 2017Q1

REPORT INFORMATION
  Report Type: Report from Study
  Country: US (occurrence: US)
  Receive Date: 20160621
  Receipt Date: 20170127
  Transmission Date: 20170428
  Serious: Yes (Death, Other)
  Sender: FDA-Public Use
  Company Number: PHHO2016US008856

PATIENT
  Age: 58 Year
  Sex: Female
  Weight: 69 kg

DRUGS (2)
  1. GSK1120212 [Suspect]
     Active Substance: TRAMETINIB
     Indication: NEOPLASM
     Dosage: 1.5 MG, QD
     Route: 048
     Dates: start: 20151124, end: 20151213
  2. NAVITOCLAX [Suspect]
     Active Substance: NAVITOCLAX
     Indication: NEOPLASM
     Dosage: 150 MG PO ON DAYS 1-7, 200 MG PO ON DAYS 8-21
     Route: 048
     Dates: start: 20151124, end: 20151214

REACTIONS (3)
  - Myocardial infarction [Unknown]
  - Embolism [Unknown]
  - Cerebrovascular accident [Fatal]

NARRATIVE: CASE EVENT DATE: 20151214
